FAERS Safety Report 11256293 (Version 1)
Quarter: 2015Q3

REPORT INFORMATION
  Report Type: Spontaneous
  Country: PL (occurrence: PL)
  Receive Date: 20150709
  Receipt Date: 20150709
  Transmission Date: 20151125
  Serious: Yes (Other)
  Sender: FDA-Public Use
  Company Number: PHHY2015PL080884

PATIENT
  Age: 6 Year
  Sex: Female

DRUGS (2)
  1. THIAMAZOLE [Suspect]
     Active Substance: METHIMAZOLE
     Indication: BASEDOW^S DISEASE
     Dosage: 10 MG, QD
     Route: 065
  2. THIAMAZOLE [Suspect]
     Active Substance: METHIMAZOLE
     Dosage: 2.5 MG/DL, QD
     Route: 065

REACTIONS (1)
  - Vitiligo [Unknown]
